FAERS Safety Report 9481222 (Version 1)
Quarter: 2013Q3

REPORT INFORMATION
  Report Type: Spontaneous
  Country: US (occurrence: US)
  Receive Date: 20130828
  Receipt Date: 20130828
  Transmission Date: 20140515
  Serious: No
  Sender: FDA-Public Use
  Company Number: US-BIOGENIDEC-2013BI079521

PATIENT
  Sex: Male

DRUGS (2)
  1. TYSABRI [Suspect]
     Indication: MULTIPLE SCLEROSIS
     Route: 042
     Dates: start: 20111209
  2. AVONEX [Concomitant]
     Indication: MULTIPLE SCLEROSIS
     Route: 030
     Dates: start: 20020908, end: 20080629

REACTIONS (6)
  - Accident [Recovered/Resolved]
  - Ligament sprain [Recovered/Resolved]
  - Joint injury [Recovered/Resolved]
  - Central nervous system lesion [Not Recovered/Not Resolved]
  - Neck pain [Not Recovered/Not Resolved]
  - Underweight [Not Recovered/Not Resolved]
